FAERS Safety Report 18687546 (Version 1)
Quarter: 2020Q4

REPORT INFORMATION
  Report Type: Spontaneous
  Country: US (occurrence: US)
  Receive Date: 20201231
  Receipt Date: 20201231
  Transmission Date: 20210114
  Serious: Yes (Hospitalization, Other)
  Sender: FDA-Public Use
  Company Number: US-LUPIN PHARMACEUTICALS INC.-2020-08357

PATIENT
  Age: 37 Year
  Sex: Female

DRUGS (7)
  1. AXITINIB [Concomitant]
     Active Substance: AXITINIB
     Indication: ALVEOLAR SOFT PART SARCOMA
     Dosage: UNK
     Route: 065
  2. AXITINIB [Concomitant]
     Active Substance: AXITINIB
     Indication: METASTASES TO LUNG
  3. PEMBROLIZUMAB. [Concomitant]
     Active Substance: PEMBROLIZUMAB
     Indication: METASTASES TO CENTRAL NERVOUS SYSTEM
  4. AZITHROMYCIN ANHYDROUS. [Suspect]
     Active Substance: AZITHROMYCIN ANHYDROUS
     Indication: PROPHYLAXIS
     Dosage: 500 MILLIGRAM, QD
     Route: 065
  5. PEMBROLIZUMAB. [Concomitant]
     Active Substance: PEMBROLIZUMAB
     Indication: ALVEOLAR SOFT PART SARCOMA
     Dosage: UNK (RECEIVED 13 CYCLES)
     Route: 065
  6. AXITINIB [Concomitant]
     Active Substance: AXITINIB
     Indication: METASTASES TO CENTRAL NERVOUS SYSTEM
  7. PEMBROLIZUMAB. [Concomitant]
     Active Substance: PEMBROLIZUMAB
     Indication: METASTASES TO LUNG

REACTIONS (1)
  - Electrocardiogram QT prolonged [Recovered/Resolved]
